FAERS Safety Report 10929054 (Version 1)
Quarter: 2015Q1

REPORT INFORMATION
  Report Type: Spontaneous
  Country: US (occurrence: None)
  Receive Date: 20150206
  Receipt Date: 20150206
  Transmission Date: 20150721
  Serious: No
  Sender: FDA-Public Use
  Company Number: 1412USA006205

PATIENT
  Age: 47 Year
  Sex: Female

DRUGS (1)
  1. GRASTEK [Suspect]
     Active Substance: PHLEUM PRATENSE POLLEN
     Indication: SEASONAL ALLERGY
     Dosage: TOTAL DAILY DOSE 2800 BAU, SUBLINGUAL
     Route: 060
     Dates: start: 20141120, end: 20141127

REACTIONS (2)
  - Rash generalised [None]
  - Nasal discomfort [None]

NARRATIVE: CASE EVENT DATE: 20141120
